FAERS Safety Report 10119867 (Version 2)
Quarter: 2015Q1

REPORT INFORMATION
  Report Type: Other
  Country: US (occurrence: US)
  Receive Date: 20140426
  Receipt Date: 20150129
  Transmission Date: 20150720
  Serious: Yes (Hospitalization, Other)
  Sender: FDA-Public Use
  Company Number: US-GSKPPD-2014GSK021246

PATIENT
  Age: 65 Year
  Sex: Female

DRUGS (4)
  1. HYDROCHLOROTHIAZIDE W/ TRIAMTERENE [Concomitant]
  2. AVANDIA [Suspect]
     Active Substance: ROSIGLITAZONE MALEATE
     Indication: DIABETES MELLITUS
     Dosage: DATES OF AVANDIA USE COULD NOT BE CONFIRMED IN RECORDS REVIEWED
     Route: 048
  3. NITROGLYCERIN. [Concomitant]
     Active Substance: NITROGLYCERIN
  4. CARVEDILOL. [Concomitant]
     Active Substance: CARVEDILOL

REACTIONS (2)
  - Coronary artery disease [Recovered/Resolved]
  - Myocardial ischaemia [Unknown]

NARRATIVE: CASE EVENT DATE: 20090831
